FAERS Safety Report 26155041 (Version 1)
Quarter: 2025Q4

REPORT INFORMATION
  Report Type: Spontaneous
  Country: US (occurrence: US)
  Receive Date: 20251215
  Receipt Date: 20251215
  Transmission Date: 20260119
  Serious: No
  Sender: TOLMAR
  Company Number: US-Tolmar-TLM-2025-09324

PATIENT

DRUGS (2)
  1. FENSOLVI [Suspect]
     Active Substance: LEUPROLIDE ACETATE
     Indication: Precocious puberty
     Dosage: BOX: LOT 15371CUF EXP 12/2026?SN: 9139971500655?GTIN (GLOBAL TRADE ITEM NUMBER):0362935163602?SYRING
  2. DEVICE [Suspect]
     Active Substance: DEVICE
     Indication: Precocious puberty
     Dosage: BOX: LOT 15371CUF EXP 12/2026?SN: 9139971500655?GTIN (GLOBAL TRADE ITEM NUMBER):0362935163602?SYRING

REACTIONS (3)
  - Intercepted product preparation error [Unknown]
  - Device leakage [Unknown]
  - Product preparation error [Unknown]
